FAERS Safety Report 16062976 (Version 3)
Quarter: 2019Q2

REPORT INFORMATION
  Report Type: Report from Study
  Country: IT (occurrence: IT)
  Receive Date: 20190312
  Receipt Date: 20190510
  Transmission Date: 20190711
  Serious: Yes (Death, Other)
  Sender: FDA-Public Use
  Company Number: IT-JNJFOC-20190307665

PATIENT
  Age: 15 Year
  Sex: Male

DRUGS (2)
  1. DARZALEX [Suspect]
     Active Substance: DARATUMUMAB
     Indication: ACUTE LYMPHOCYTIC LEUKAEMIA
     Route: 065
     Dates: start: 20190221, end: 20190221
  2. DARZALEX [Suspect]
     Active Substance: DARATUMUMAB
     Indication: ACUTE LYMPHOCYTIC LEUKAEMIA
     Route: 065
     Dates: start: 20190222, end: 20190308

REACTIONS (8)
  - Product use in unapproved indication [Unknown]
  - Arthralgia [Unknown]
  - Cardiac tamponade [Unknown]
  - Pericardial effusion [Unknown]
  - Cardiac arrest [Fatal]
  - Infusion related reaction [Recovered/Resolved]
  - Chest pain [Recovered/Resolved]
  - Off label use [Unknown]

NARRATIVE: CASE EVENT DATE: 20190221
